FAERS Safety Report 8716293 (Version 2)
Quarter: 2013Q4

REPORT INFORMATION
  Report Type: Spontaneous
  Country: GB (occurrence: GB)
  Receive Date: 20120810
  Receipt Date: 20131031
  Transmission Date: 20140711
  Serious: Yes (Other)
  Sender: FDA-Public Use
  Company Number: GB-009507513-1208GBR002097

PATIENT
  Age: 75 Year
  Sex: Male
  Weight: 101.6 kg

DRUGS (11)
  1. JANUVIA [Suspect]
     Dosage: UNK
     Route: 048
     Dates: start: 20120726
  2. JANUVIA [Suspect]
     Dosage: UNK
     Dates: start: 20120628
  3. AMITRIPTYLINE HYDROCHLORIDE [Concomitant]
     Dosage: UNK
     Dates: start: 20120404
  4. AMOXICILLIN [Concomitant]
     Dosage: UNK
     Dates: start: 20120726
  5. ASPIRIN [Concomitant]
     Dosage: UNK
     Dates: start: 20120404
  6. ATORVASTATIN [Concomitant]
     Dosage: UNK
     Dates: start: 20120404
  7. DIPYRIDAMOLE [Concomitant]
     Dosage: UNK
     Dates: start: 20120404, end: 20120504
  8. DIPYRIDAMOLE [Concomitant]
     Dosage: UNK
     Dates: start: 20120531
  9. GLICLAZIDE [Concomitant]
     Dosage: UNK
     Dates: start: 20120404
  10. METFORMIN [Concomitant]
     Dosage: UNK
     Dates: start: 20120404, end: 20120726
  11. PERINDOPRIL ERBUMINE [Concomitant]
     Dosage: UNK
     Dates: start: 20120404

REACTIONS (5)
  - Decreased appetite [Recovering/Resolving]
  - Constipation [Recovering/Resolving]
  - Dizziness [Recovering/Resolving]
  - Pain [Unknown]
  - Rhinorrhoea [Recovering/Resolving]
